FAERS Safety Report 16116284 (Version 1)
Quarter: 2019Q1

REPORT INFORMATION
  Report Type: Other
  Country: DE (occurrence: DE)
  Receive Date: 20190326
  Receipt Date: 20190326
  Transmission Date: 20190418
  Serious: Yes (Other)
  Sender: FDA-Public Use
  Company Number: DE-APOTEX-2019AP010007

PATIENT
  Sex: Male
  Weight: 85 kg

DRUGS (4)
  1. TOLPERISON HCL DURA 50 MG [Suspect]
     Active Substance: TOLPERISONE HYDROCHLORIDE
     Indication: PRODUCT USED FOR UNKNOWN INDICATION
     Dosage: 1000 MG, SINGLE (DAILY DOSE: 1000 MG MILLIGRAM(S) EVERY ; IN TOTAL)
     Route: 048
     Dates: start: 20150524, end: 20150524
  2. IBUDOLOR [Suspect]
     Active Substance: IBUPROFEN
     Indication: PRODUCT USED FOR UNKNOWN INDICATION
     Dosage: 2800 MG, SINGLE (DAILY DOSE: 2800 MG MILLIGRAM(S) EVERY ; IN TOTAL)
     Route: 048
     Dates: start: 20150524, end: 20150524
  3. PANTOPRAZOLE [Suspect]
     Active Substance: PANTOPRAZOLE
     Indication: PRODUCT USED FOR UNKNOWN INDICATION
     Dosage: 400 MG, SINGLE (DAILY DOSE: 400 MG MILLIGRAM(S) EVERY ; IN TOTAL)
     Route: 048
     Dates: start: 20150524, end: 20150524
  4. VOLTAREN RESINAT                   /00372302/ [Suspect]
     Active Substance: DICLOFENAC SODIUM
     Indication: PRODUCT USED FOR UNKNOWN INDICATION
     Dosage: 10 DF, SINGLE (DAILY DOSE: 10 DF DOSAGE FORM EVERY ; IN TOTAL)
     Route: 048
     Dates: start: 20150524, end: 20150524

REACTIONS (3)
  - Intentional overdose [Unknown]
  - Fatigue [Unknown]
  - Suicide attempt [Unknown]

NARRATIVE: CASE EVENT DATE: 20150524
